FAERS Safety Report 9781697 (Version 1)
Quarter: 2013Q4

REPORT INFORMATION
  Report Type: Spontaneous
  Country: US (occurrence: US)
  Receive Date: 20131224
  Receipt Date: 20131224
  Transmission Date: 20140711
  Serious: Yes (Hospitalization, Other)
  Sender: FDA-Public Use
  Company Number: US-GILEAD-2013-0090707

PATIENT
  Age: 41 Year
  Sex: Female

DRUGS (3)
  1. LETAIRIS [Suspect]
     Indication: PRODUCT USED FOR UNKNOWN INDICATION
     Route: 048
     Dates: start: 20130205
  2. LOVENOX [Concomitant]
  3. COUMADIN                           /00014802/ [Concomitant]

REACTIONS (3)
  - Sensory loss [Unknown]
  - Venous thrombosis [Unknown]
  - Movement disorder [Unknown]
